FAERS Safety Report 18441900 (Version 1)
Quarter: 2020Q4

REPORT INFORMATION
  Report Type: Spontaneous
  Country: GB (occurrence: GB)
  Receive Date: 20201029
  Receipt Date: 20201029
  Transmission Date: 20210114
  Serious: Yes (Other)
  Sender: FDA-Public Use
  Company Number: GB-SAMSUNG BIOEPIS-SB-2020-32554

PATIENT
  Age: 20 Year
  Sex: Male

DRUGS (2)
  1. IMRALDI [Suspect]
     Active Substance: ADALIMUMAB
     Indication: PRODUCT USED FOR UNKNOWN INDICATION
     Dosage: UNKNOWN
     Route: 065
  2. HUMIRA [Suspect]
     Active Substance: ADALIMUMAB
     Indication: CROHN^S DISEASE
     Dosage: 40MG/0.4ML
     Route: 058

REACTIONS (6)
  - Crohn^s disease [Unknown]
  - Unevaluable event [Unknown]
  - Intentional product misuse [Unknown]
  - Injection site pain [Unknown]
  - Peripheral swelling [Unknown]
  - Dizziness [Unknown]

NARRATIVE: CASE EVENT DATE: 201908
